FAERS Safety Report 9229919 (Version 1)
Quarter: 2013Q2

REPORT INFORMATION
  Report Type: Spontaneous
  Country: US (occurrence: None)
  Receive Date: 20130411
  Receipt Date: 20130411
  Transmission Date: 20140414
  Serious: Yes (Hospitalization)
  Sender: FDA-Public Use
  Company Number: MFR-2013-01

PATIENT
  Sex: Male

DRUGS (1)
  1. LACHESIS MUTUS [Suspect]

REACTIONS (2)
  - Haematemesis [None]
  - Bleeding varicose vein [None]
